FAERS Safety Report 10567867 (Version 2)
Quarter: 2014Q4

REPORT INFORMATION
  Report Type: Spontaneous
  Country: US (occurrence: US)
  Receive Date: 20141106
  Receipt Date: 20141121
  Transmission Date: 20150529
  Serious: No
  Sender: FDA-Public Use
  Company Number: US-LEO PHARMA-229621

PATIENT
  Age: 60 Year
  Sex: Female

DRUGS (1)
  1. PICATO [Suspect]
     Active Substance: INGENOL MEBUTATE
     Indication: ACTINIC KERATOSIS
     Route: 061
     Dates: start: 20140903, end: 20140903

REACTIONS (5)
  - Application site vesicles [Unknown]
  - Incorrect drug administration duration [Unknown]
  - Application site pain [Unknown]
  - Dermatitis contact [Unknown]
  - Application site infection [Unknown]

NARRATIVE: CASE EVENT DATE: 20140903
